FAERS Safety Report 7940816-8 (Version None)
Quarter: 2011Q4

REPORT INFORMATION
  Report Type: 
  Country: None (occurrence: None)
  Receive Date: 20111128
  Receipt Date: 20111123
  Transmission Date: 20120403
  Serious: Yes (Other)
  Sender: FDA-Public Use
  Company Number: US-PFIZER INC-2011270895

PATIENT
  Sex: Female
  Weight: 68.481 kg

DRUGS (1)
  1. CHANTIX [Suspect]
     Indication: SMOKING CESSATION THERAPY
     Dosage: UNK
     Dates: start: 20111001, end: 20111001

REACTIONS (6)
  - LEUKAEMIA [None]
  - EAR DISCOMFORT [None]
  - DRUG INEFFECTIVE [None]
  - SUICIDAL IDEATION [None]
  - DEPRESSION [None]
  - NEOPLASM [None]
